FAERS Safety Report 9767479 (Version 2)
Quarter: 2013Q4

REPORT INFORMATION
  Report Type: Report from Study
  Country: IT (occurrence: IT)
  Receive Date: 20131217
  Receipt Date: 20131217
  Transmission Date: 20140711
  Serious: Yes (Life-Threatening, Hospitalization)
  Sender: FDA-Public Use
  Company Number: IT-INCYTE CORPORATION-2013IN002084

PATIENT
  Sex: 0

DRUGS (2)
  1. INC424 [Suspect]
     Indication: MYELOFIBROSIS
     Dosage: 5 MG, QD
     Route: 048
     Dates: start: 20121129, end: 20130904
  2. PREDNISONE [Suspect]
     Indication: MYELOFIBROSIS
     Dosage: 10 MG, QD
     Route: 048
     Dates: start: 20130117, end: 20130904

REACTIONS (3)
  - Pulmonary alveolar haemorrhage [Recovered/Resolved with Sequelae]
  - Alveolitis [Recovered/Resolved with Sequelae]
  - Respiratory failure [Recovering/Resolving]
